FAERS Safety Report 14002783 (Version 1)
Quarter: 2017Q3

REPORT INFORMATION
  Report Type: Spontaneous
  Country: US (occurrence: US)
  Receive Date: 20170922
  Receipt Date: 20170922
  Transmission Date: 20171128
  Serious: Yes (Death, Hospitalization)
  Sender: FDA-Public Use
  Company Number: US-JNJFOC-20170822770

PATIENT
  Age: 87 Year
  Sex: Male

DRUGS (5)
  1. XARELTO [Suspect]
     Active Substance: RIVAROXABAN
     Indication: PULMONARY EMBOLISM
     Dosage: 15 MG TWICE DAILY FOR 21 DAYS AND THEN 20 MG DAILY AND THEN 15 MG DAILY
     Route: 048
     Dates: start: 20141209, end: 20160419
  2. XARELTO [Suspect]
     Active Substance: RIVAROXABAN
     Indication: ATRIAL FIBRILLATION
     Dosage: 15 MG TWICE DAILY FOR 21 DAYS AND THEN 20 MG DAILY AND THEN 15 MG DAILY
     Route: 048
     Dates: start: 20141209, end: 20160419
  3. XARELTO [Suspect]
     Active Substance: RIVAROXABAN
     Indication: DEEP VEIN THROMBOSIS
     Dosage: 15 MG TWICE DAILY FOR 21 DAYS AND THEN 20 MG DAILY AND THEN 15 MG DAILY
     Route: 048
     Dates: start: 20141209, end: 20160419
  4. XARELTO [Suspect]
     Active Substance: RIVAROXABAN
     Indication: THROMBOSIS PROPHYLAXIS
     Dosage: 15 MG TWICE DAILY FOR 21 DAYS AND THEN 20 MG DAILY AND THEN 15 MG DAILY
     Route: 048
     Dates: start: 20141209, end: 20160419
  5. XARELTO [Suspect]
     Active Substance: RIVAROXABAN
     Indication: CEREBROVASCULAR ACCIDENT PROPHYLAXIS
     Dosage: 15 MG TWICE DAILY FOR 21 DAYS AND THEN 20 MG DAILY AND THEN 15 MG DAILY
     Route: 048
     Dates: start: 20141209, end: 20160419

REACTIONS (1)
  - Haemorrhage intracranial [Fatal]

NARRATIVE: CASE EVENT DATE: 20160418
